FAERS Safety Report 4343622-9 (Version None)
Quarter: 2004Q2

REPORT INFORMATION
  Report Type: 
  Country: None (occurrence: None)
  Receive Date: 20040419
  Receipt Date: 20040223
  Transmission Date: 20050107
  Serious: Yes (Hospitalization, Other)
  Sender: FDA-Public Use
  Company Number: KII-2004-0009505

PATIENT
  Age: 33 Year
  Sex: Female

DRUGS (3)
  1. OXYCONTIN [Suspect]
  2. METHADONE (METHADONE) [Suspect]
  3. PAXIL [Suspect]

REACTIONS (35)
  - ALANINE AMINOTRANSFERASE INCREASED [None]
  - ASPARTATE AMINOTRANSFERASE INCREASED [None]
  - BILIRUBIN CONJUGATED INCREASED [None]
  - BLOOD AMYLASE INCREASED [None]
  - BLOOD CREATINE PHOSPHOKINASE INCREASED [None]
  - BLOOD CREATINE PHOSPHOKINASE MB INCREASED [None]
  - BLOOD CREATININE INCREASED [None]
  - BLOOD POTASSIUM DECREASED [None]
  - BLOOD PRESSURE DECREASED [None]
  - BLOOD PRESSURE DIASTOLIC DECREASED [None]
  - BODY TEMPERATURE DECREASED [None]
  - CONFUSIONAL STATE [None]
  - DEPRESSED LEVEL OF CONSCIOUSNESS [None]
  - GRIMACING [None]
  - HEART RATE DECREASED [None]
  - HEART RATE INCREASED [None]
  - HYPERSOMNIA [None]
  - JOINT STIFFNESS [None]
  - LIPASE INCREASED [None]
  - MARKEDLY REDUCED DIETARY INTAKE [None]
  - MASKED FACIES [None]
  - MIOSIS [None]
  - MULTIPLE DRUG OVERDOSE [None]
  - MUSCLE RIGIDITY [None]
  - OXYGEN SATURATION DECREASED [None]
  - POLYSUBSTANCE ABUSE [None]
  - PROTHROMBIN TIME PROLONGED [None]
  - REFUSAL OF TREATMENT BY PATIENT [None]
  - RHABDOMYOLYSIS [None]
  - RHONCHI [None]
  - TREMOR [None]
  - TROPONIN INCREASED [None]
  - URINE ABNORMALITY [None]
  - URINE OUTPUT DECREASED [None]
  - WHEEZING [None]
